FAERS Safety Report 12179235 (Version 1)
Quarter: 2016Q1

REPORT INFORMATION
  Report Type: Spontaneous
  Country: NO (occurrence: NO)
  Receive Date: 20160315
  Receipt Date: 20160315
  Transmission Date: 20160526
  Serious: Yes (Hospitalization)
  Sender: FDA-Public Use
  Company Number: NO-EMD SERONO-E2B_80032991

PATIENT
  Age: 44 Year
  Sex: Female

DRUGS (1)
  1. CETROTIDE [Suspect]
     Active Substance: CETRORELIX ACETATE
     Indication: PRODUCT USED FOR UNKNOWN INDICATION
     Route: 051
     Dates: start: 20071101, end: 20071101

REACTIONS (4)
  - Hyperacusis [Recovered/Resolved]
  - Cold sweat [Recovered/Resolved]
  - Paraesthesia [Recovered/Resolved]
  - Headache [Recovered/Resolved]

NARRATIVE: CASE EVENT DATE: 20071101
